FAERS Safety Report 9036442 (Version 1)
Quarter: 2013Q1

REPORT INFORMATION
  Report Type: Spontaneous
  Country: US (occurrence: None)
  Receive Date: 20130117
  Receipt Date: 20130117
  Transmission Date: 20140127
  Serious: Yes (Other)
  Sender: FDA-Public Use
  Company Number: None

PATIENT
  Age: 19 Year
  Sex: Female
  Weight: 47.6 kg

DRUGS (1)
  1. BUSPIRONE [Suspect]
     Indication: ANXIETY
     Route: 048
     Dates: start: 20121024, end: 20121025

REACTIONS (5)
  - Dystonia [None]
  - Extrapyramidal disorder [None]
  - Aspartate aminotransferase increased [None]
  - Alanine aminotransferase increased [None]
  - Hyperhidrosis [None]
